FAERS Safety Report 5050968-8 (Version None)
Quarter: 2006Q3

REPORT INFORMATION
  Report Type: 
  Country: None (occurrence: None)
  Receive Date: 20060710
  Receipt Date: 20060628
  Transmission Date: 20061208
  Serious: Yes (Other)
  Sender: FDA-Public Use
  Company Number: 2006082591

PATIENT
  Sex: Female

DRUGS (2)
  1. ZARONTIN [Suspect]
     Dosage: 50 MG (50 MG, 1 IN 1 D),
     Dates: start: 20060623
  2. DEPAKOTE [Concomitant]

REACTIONS (1)
  - PALPITATIONS [None]
